FAERS Safety Report 6588763-0 (Version None)
Quarter: 2010Q1

REPORT INFORMATION
  Report Type: 
  Country: None (occurrence: None)
  Receive Date: 20100212
  Receipt Date: 20100126
  Transmission Date: 20100710
  Serious: Yes (Hospitalization)
  Sender: FDA-Public Use
  Company Number: 2009070038

PATIENT
  Age: 69 Year
  Sex: Male
  Weight: 111 kg

DRUGS (8)
  1. TORSEMIDE [Suspect]
     Indication: HYPERTENSION
     Dosage: 10 MG (10 MG, 1 IN 1 D), ORAL
     Route: 048
     Dates: start: 20000101
  2. CIPROFLOXACIN HCL [Suspect]
     Indication: PYELONEPHRITIS
     Dosage: 500 MG (250 MG, 1 IN 1 D), ORAL
     Route: 048
     Dates: start: 20081028, end: 20081030
  3. LISIHEXAL COMP (LISINOPRIL, HYDROCHLOROTHIAZIDE) [Suspect]
     Indication: HYPERTENSION
     Dosage: 20/12.5 MG (1 TABLET, 2 IN 1 D), ORAL
     Route: 048
     Dates: start: 20000101, end: 20081030
  4. DIGITOXIN TAB [Suspect]
     Indication: ATRIAL FIBRILLATION
     Dosage: 0.07 MG (0.7 MG, 1 IN 1 D), ORAL
     Route: 048
     Dates: start: 19950101, end: 20081030
  5. AGGRENOX (ACETYLLSALICIC ACID, DIPYRIDAMOLE) [Concomitant]
  6. SIMVASTATIN [Concomitant]
  7. VERA 80 HEUMANN (VERAPAMIL) [Concomitant]
  8. ALLOPURINOL [Concomitant]

REACTIONS (13)
  - ATRIAL FIBRILLATION [None]
  - BLOOD SODIUM DECREASED [None]
  - CARDIOACTIVE DRUG LEVEL INCREASED [None]
  - DYSLIPIDAEMIA [None]
  - ENTERITIS [None]
  - GASTROENTERITIS VIRAL [None]
  - HAEMATOCRIT DECREASED [None]
  - HAEMOGLOBIN DECREASED [None]
  - HYPERTENSION [None]
  - HYPERURICAEMIA [None]
  - HYPOTENSION [None]
  - RENAL FAILURE [None]
  - WHITE BLOOD CELLS URINE POSITIVE [None]
